FAERS Safety Report 7794885-9 (Version None)
Quarter: 2011Q4

REPORT INFORMATION
  Report Type: 
  Country: None (occurrence: None)
  Receive Date: 20111004
  Receipt Date: 20110921
  Transmission Date: 20120403
  Serious: Yes (Other)
  Sender: FDA-Public Use
  Company Number: PHHY2011BR84939

PATIENT
  Age: 59 Year
  Sex: Female

DRUGS (9)
  1. EXFORGE [Suspect]
     Dosage: 320 MG/10 MG
  2. HYDRALAZINE HCL [Suspect]
     Dosage: 150 MG, PER DAY
  3. NIFEDIPINE [Concomitant]
     Indication: HYPERTENSION
     Dosage: 10 MG, BID
  4. LOSARTAN POTASSIUM [Suspect]
     Dosage: 100/25 MG
  5. PANTOPRAZOLE [Concomitant]
     Dosage: 40 MG, UNK
  6. METOPROLOL TARTRATE [Suspect]
     Dosage: 100 MG, UNK
  7. PREDNISONE [Concomitant]
     Dosage: 5 MG, PER DAY
  8. ATENOLOL [Concomitant]
     Dosage: 50 MG, UNK
  9. EXFORGE [Suspect]
     Dosage: 160/5 MG
     Dates: start: 20091012

REACTIONS (7)
  - ANTINUCLEAR ANTIBODY INCREASED [None]
  - BLOOD UREA INCREASED [None]
  - LEFT VENTRICULAR HYPERTROPHY [None]
  - ANTINEUTROPHIL CYTOPLASMIC ANTIBODY INCREASED [None]
  - LEFT VENTRICULAR DYSFUNCTION [None]
  - AORTIC VALVE INCOMPETENCE [None]
  - HEART RATE DECREASED [None]
